FAERS Safety Report 6988545-1 (Version None)
Quarter: 2010Q3

REPORT INFORMATION
  Report Type: 
  Country: None (occurrence: None)
  Receive Date: 20100916
  Receipt Date: 20100901
  Transmission Date: 20110219
  Serious: Yes (Other)
  Sender: FDA-Public Use
  Company Number: CO-PFIZER INC-2010065665

PATIENT
  Age: 68 Year
  Sex: Female

DRUGS (12)
  1. LYRICA [Suspect]
     Indication: NEURALGIA
     Dosage: UNK, 1X/DAY
     Route: 048
     Dates: start: 20100301, end: 20100101
  2. LYRICA [Suspect]
     Indication: SCIATIC NERVE NEUROPATHY
  3. LIPITOR [Suspect]
     Indication: BLOOD CHOLESTEROL INCREASED
     Dosage: 20 MG, DAILY
     Route: 048
     Dates: start: 20060101
  4. LIPITOR [Suspect]
     Indication: HYPERCHOLESTEROLAEMIA
  5. OLMETEC [Suspect]
     Indication: HYPERTENSION
     Dosage: 10 MG, 1X/DAY
     Route: 048
     Dates: start: 20080101
  6. OLMETEC [Suspect]
  7. NEURONTIN [Suspect]
     Indication: NEUROPATHY PERIPHERAL
     Dosage: 400 MG, DAILY
     Route: 048
     Dates: start: 20100518
  8. WARFARIN [Concomitant]
     Indication: ANTICOAGULANT THERAPY
     Dosage: 5 MG, 1X/DAY
  9. METOPROLOL SUCCINATE [Concomitant]
     Indication: HYPERTENSION
     Dosage: 100 MG, 1X/DAY
  10. CALCIUM [Concomitant]
     Indication: OSTEOPOROSIS PROPHYLAXIS
     Dosage: 2 DF, DAILY
     Route: 048
  11. VITAMIN D [Concomitant]
     Indication: PAIN
     Dosage: UNK
  12. VITAMIN D [Concomitant]
     Indication: NEURALGIA

REACTIONS (8)
  - ATRIAL FIBRILLATION [None]
  - CHEST PAIN [None]
  - COAGULATION TIME PROLONGED [None]
  - HYPOTENSION [None]
  - NEUROPATHY PERIPHERAL [None]
  - PALPITATIONS [None]
  - SPINAL COLUMN STENOSIS [None]
  - SPINAL DISORDER [None]
